FAERS Safety Report 21356944 (Version 1)
Quarter: 2022Q3

REPORT INFORMATION
  Report Type: Spontaneous
  Country: AU (occurrence: AU)
  Receive Date: 20220921
  Receipt Date: 20220921
  Transmission Date: 20221027
  Serious: Yes (Hospitalization)
  Sender: FDA-Public Use
  Company Number: AU-STRIDES ARCOLAB LIMITED-2022SP011840

PATIENT
  Age: 44 Year
  Sex: Female

DRUGS (3)
  1. DIAZEPAM [Suspect]
     Active Substance: DIAZEPAM
     Indication: Suicidal ideation
     Dosage: 5 MILLIGRAM, UNKNOWN
     Route: 048
  2. ALCOHOL [Suspect]
     Active Substance: ALCOHOL
     Indication: Suicidal ideation
     Dosage: UNK
     Route: 065
  3. ISOPROPANOLAMINE [Suspect]
     Active Substance: ISOPROPANOLAMINE
     Indication: Suicidal ideation
     Dosage: UNK
     Route: 048

REACTIONS (1)
  - Intentional product misuse [Unknown]
